FAERS Safety Report 9396879 (Version 1)
Quarter: 2013Q3

REPORT INFORMATION
  Report Type: Spontaneous
  Country: US (occurrence: None)
  Receive Date: 20130710
  Receipt Date: 20130710
  Transmission Date: 20140515
  Serious: Yes (Life-Threatening, Hospitalization, Other)
  Sender: FDA-Public Use
  Company Number: None

PATIENT
  Age: 61 Year
  Sex: Female
  Weight: 47.63 kg

DRUGS (1)
  1. BOTOX [Suspect]
     Indication: MIGRAINE
     Dosage: 50 SHOTS
     Dates: start: 20130618, end: 20130618

REACTIONS (6)
  - Paralysis [None]
  - Trismus [None]
  - Cerebrovascular accident [None]
  - Vomiting [None]
  - Speech disorder [None]
  - Dysphagia [None]
